FAERS Safety Report 8984305 (Version 1)
Quarter: 2012Q4

REPORT INFORMATION
  Report Type: 
  Country: US (occurrence: US)
  Receive Date: 20121226
  Receipt Date: 20121226
  Transmission Date: 20130627
  Serious: Yes (Hospitalization)
  Sender: FDA-Public Use
  Company Number: US-009507513-1212USA008190

PATIENT

DRUGS (1)
  1. NUVARING [Suspect]
     Dosage: UNK
     Dates: start: 2008, end: 201102

REACTIONS (1)
  - Cerebral artery thrombosis [Unknown]
